FAERS Safety Report 16041586 (Version 4)
Quarter: 2020Q3

REPORT INFORMATION
  Report Type: Spontaneous
  Country: US (occurrence: US)
  Receive Date: 20190306
  Receipt Date: 20200812
  Transmission Date: 20201102
  Serious: Yes (Hospitalization)
  Sender: FDA-Public Use
  Company Number: US-PFIZER INC-2018114312

PATIENT
  Age: 84 Year
  Sex: Female
  Weight: 60.78 kg

DRUGS (1)
  1. IBRANCE [Suspect]
     Active Substance: PALBOCICLIB
     Indication: BREAST CANCER FEMALE
     Dosage: 125 MG, CYCLIC ((ONCE A DAY FOR 21 DAYS))
     Route: 048
     Dates: start: 20180316

REACTIONS (2)
  - Musculoskeletal discomfort [Recovered/Resolved]
  - Muscular weakness [Unknown]
